FAERS Safety Report 7437310-X (Version None)
Quarter: 2011Q2

REPORT INFORMATION
  Report Type: 
  Country: None (occurrence: None)
  Receive Date: 20110426
  Receipt Date: 20110412
  Transmission Date: 20111010
  Serious: Yes (Other)
  Sender: FDA-Public Use
  Company Number: US-CELGENEUS-163-50794-11042175

PATIENT
  Age: 72 Year
  Sex: Male

DRUGS (7)
  1. LEVOXYL [Concomitant]
     Dosage: 150 MICROGRAM
     Route: 048
  2. EXJADE [Concomitant]
     Dosage: 500 MILLIGRAM
     Route: 048
  3. VIDAZA [Suspect]
     Indication: MYELODYSPLASTIC SYNDROME
     Dosage: 75 MILLIGRAM/SQ. METER
     Route: 058
     Dates: start: 20100830, end: 20100903
  4. VIDAZA [Suspect]
     Indication: CYTOGENETIC ABNORMALITY
     Dosage: 75 MILLIGRAM
     Route: 058
     Dates: start: 20100927
  5. PANTOPRAZOLE SODIUM [Concomitant]
     Dosage: 40 MILLIGRAM
     Route: 048
  6. POTASSIUM CHLORIDE [Concomitant]
     Dosage: 10 MILLIEQUIVALENTS
     Route: 048
  7. LIPITOR [Concomitant]
     Dosage: 10 MILLIGRAM
     Route: 048

REACTIONS (4)
  - PANCYTOPENIA [None]
  - PYREXIA [None]
  - FALL [None]
  - SPINAL FRACTURE [None]
